FAERS Safety Report 19037200 (Version 1)
Quarter: 2021Q1

REPORT INFORMATION
  Report Type: Spontaneous
  Country: US (occurrence: US)
  Receive Date: 20210322
  Receipt Date: 20210322
  Transmission Date: 20210420
  Serious: Yes (Other)
  Sender: FDA-Public Use
  Company Number: US-SUN PHARMACEUTICAL INDUSTRIES LTD-2021R1-286827

PATIENT
  Age: 81 Year
  Sex: Male

DRUGS (3)
  1. NAB?PACLITAXEL [Suspect]
     Active Substance: PACLITAXEL
     Indication: ACINAR CELL CARCINOMA OF PANCREAS
     Dosage: CYCLE 6
     Route: 065
  2. GEMCITABINE. [Suspect]
     Active Substance: GEMCITABINE
     Indication: ACINAR CELL CARCINOMA OF PANCREAS
     Dosage: 1,000 MG/M2 ON DAYS 1, 8, AND 15 OF A 28?DAY CYCLE
     Route: 065
  3. GEMCITABINE. [Suspect]
     Active Substance: GEMCITABINE
     Dosage: 800 MG/M2 ON DAYS 1 AND 8 OF A 21?DAY CYCLE
     Route: 065

REACTIONS (2)
  - Drug intolerance [Unknown]
  - Disease progression [Unknown]
